FAERS Safety Report 9289564 (Version 1)
Quarter: 2013Q2

REPORT INFORMATION
  Report Type: Spontaneous
  Country: US (occurrence: US)
  Receive Date: 20130515
  Receipt Date: 20130515
  Transmission Date: 20140414
  Serious: Yes (Hospitalization, Other)
  Sender: FDA-Public Use
  Company Number: US-AMGEN-USASP2013033569

PATIENT
  Age: 40 Year
  Sex: Male

DRUGS (2)
  1. ENBREL [Suspect]
     Indication: PSORIASIS
     Dosage: 50 MG, 2 TIMES/WK
     Dates: start: 20070101
  2. HUMIRA [Suspect]
     Dosage: UNK

REACTIONS (6)
  - Drug hypersensitivity [Recovered/Resolved]
  - Urticaria [Recovered/Resolved]
  - Dyspnoea [Recovered/Resolved]
  - Neoplasm [Recovered/Resolved]
  - Colitis [Not Recovered/Not Resolved]
  - Skin plaque [Not Recovered/Not Resolved]
